FAERS Safety Report 10636731 (Version 1)
Quarter: 2014Q4

REPORT INFORMATION
  Report Type: Spontaneous
  Country: US (occurrence: None)
  Receive Date: 20141204
  Receipt Date: 20141204
  Transmission Date: 20150529
  Serious: Yes (Other)
  Sender: FDA-Public Use
  Company Number: None

PATIENT
  Age: 28 Year
  Sex: Female
  Weight: 72.58 kg

DRUGS (1)
  1. ZYRTEC [Suspect]
     Active Substance: CETIRIZINE HYDROCHLORIDE
     Indication: SEASONAL ALLERGY
     Dosage: 1 PILL TAKEN BY MOUTH
     Route: 048

REACTIONS (4)
  - Scratch [None]
  - Pruritus [None]
  - Haemorrhage [None]
  - Insomnia [None]

NARRATIVE: CASE EVENT DATE: 20141202
